FAERS Safety Report 17691538 (Version 1)
Quarter: 2020Q2

REPORT INFORMATION
  Report Type: Spontaneous
  Country: US (occurrence: US)
  Receive Date: 20200422
  Receipt Date: 20200422
  Transmission Date: 20200714
  Serious: Yes (Hospitalization)
  Sender: FDA-Public Use
  Company Number: US-US WORLDMEDS, LLC-USW202004-000757

PATIENT
  Age: 86 Year
  Sex: Male

DRUGS (1)
  1. BOTULINUM TOXIN TYPE B [Suspect]
     Active Substance: RIMABOTULINUMTOXINB
     Indication: SALIVARY HYPERSECRETION
     Dosage: UNKNOWN

REACTIONS (2)
  - Salivary gland calculus [Unknown]
  - Parotitis [Unknown]
